FAERS Safety Report 6327233-1 (Version None)
Quarter: 2009Q3

REPORT INFORMATION
  Report Type: 
  Country: None (occurrence: None)
  Receive Date: 20090825
  Receipt Date: 20090819
  Transmission Date: 20100115
  Serious: Yes (Hospitalization, Other)
  Sender: FDA-Public Use
  Company Number: US-ABBOTT-09P-163-0592075-00

PATIENT
  Sex: Female
  Weight: 99.88 kg

DRUGS (3)
  1. HUMIRA [Suspect]
     Indication: CROHN'S DISEASE
     Route: 058
     Dates: start: 20080901
  2. FLEXERIL [Concomitant]
     Indication: FIBROMYALGIA
  3. ATIVAN [Concomitant]
     Indication: VERTIGO

REACTIONS (3)
  - CROHN'S DISEASE [None]
  - OVARIAN CYST RUPTURED [None]
  - VOMITING [None]
